FAERS Safety Report 8290358-8 (Version None)
Quarter: 2012Q2

REPORT INFORMATION
  Report Type: 
  Country: None (occurrence: None)
  Receive Date: 20120417
  Receipt Date: 20120404
  Transmission Date: 20120825
  Serious: Yes (Hospitalization)
  Sender: FDA-Public Use
  Company Number: FR-ELI_LILLY_AND_COMPANY-FR201204002708

PATIENT
  Age: 57 Year
  Sex: Female

DRUGS (3)
  1. ZYPREXA [Suspect]
     Indication: SCHIZOPHRENIA
     Dosage: 20 MG, QD
     Route: 048
  2. OLANZAPINE [Suspect]
     Indication: SCHIZOPHRENIA
     Dosage: 405 MG, EVERY 3 WEEKS
     Route: 030
  3. OLANZAPINE [Suspect]
     Dosage: 300 MG, EVERY 3 WEEKS
     Route: 030

REACTIONS (6)
  - SEDATION [None]
  - MENTAL DISORDER [None]
  - FATIGUE [None]
  - DELIRIUM [None]
  - DIZZINESS [None]
  - OVERDOSE [None]
